FAERS Safety Report 11154858 (Version 3)
Quarter: 2015Q3

REPORT INFORMATION
  Report Type: Spontaneous
  Country: JP (occurrence: JP)
  Receive Date: 20150602
  Receipt Date: 20150722
  Transmission Date: 20151125
  Serious: Yes (Life-Threatening, Hospitalization, Other)
  Sender: FDA-Public Use
  Company Number: JP-ROCHE-1586689

PATIENT
  Age: 90 Year
  Sex: Female
  Weight: 43 kg

DRUGS (11)
  1. HOKUNALIN [Concomitant]
     Active Substance: TULOBUTEROL
     Dosage: TAPE (INCLUDING POULTICE)
     Route: 065
     Dates: start: 20120605, end: 20141021
  2. AMLODIN [Concomitant]
     Active Substance: AMLODIPINE BESYLATE
     Route: 065
     Dates: start: 20120605, end: 20141021
  3. XOLAIR [Suspect]
     Active Substance: OMALIZUMAB
     Route: 058
     Dates: start: 20141021, end: 20141021
  4. PREDNISOLONE. [Suspect]
     Active Substance: PREDNISOLONE
     Indication: ASTHMA
     Route: 065
     Dates: start: 20120605
  5. THEO-DUR [Concomitant]
     Active Substance: THEOPHYLLINE ANHYDROUS
     Route: 065
     Dates: start: 20130510, end: 20141021
  6. SEEBRI [Concomitant]
     Active Substance: GLYCOPYRRONIUM
     Route: 065
     Dates: start: 20121207, end: 20141021
  7. SINGULAIR [Concomitant]
     Active Substance: MONTELUKAST SODIUM
     Route: 065
     Dates: start: 20120605, end: 20141021
  8. RABEPRAZOLE SODIUM. [Concomitant]
     Active Substance: RABEPRAZOLE SODIUM
     Route: 065
     Dates: start: 20120605, end: 20141021
  9. XOLAIR [Suspect]
     Active Substance: OMALIZUMAB
     Indication: ASTHMA
     Route: 058
     Dates: start: 20130513, end: 20141021
  10. REMINYL [Concomitant]
     Active Substance: GALANTAMINE
     Route: 065
     Dates: start: 20121001, end: 20141021
  11. ALVESCO [Concomitant]
     Active Substance: CICLESONIDE
     Route: 065
     Dates: start: 20120605, end: 20141021

REACTIONS (4)
  - Cardiogenic shock [Unknown]
  - Arteriosclerosis [Not Recovered/Not Resolved]
  - Cardiac failure chronic [Recovered/Resolved with Sequelae]
  - Acute myocardial infarction [Recovered/Resolved with Sequelae]

NARRATIVE: CASE EVENT DATE: 20141119
